FAERS Safety Report 17349875 (Version 1)
Quarter: 2020Q1

REPORT INFORMATION
  Report Type: Spontaneous
  Country: US (occurrence: US)
  Receive Date: 20200115
  Receipt Date: 20200115
  Transmission Date: 20200409
  Serious: Yes (Hospitalization)
  Sender: FDA-Public Use
  Company Number: None

PATIENT
  Age: 43 Year

DRUGS (2)
  1. TEMOZOLOMIDE 100MG [Suspect]
     Active Substance: TEMOZOLOMIDE
     Indication: BRAIN NEOPLASM
     Route: 048
     Dates: start: 20190912
  2. TEMOZOLOMIDE 250MG [Suspect]
     Active Substance: TEMOZOLOMIDE
     Indication: BRAIN NEOPLASM
     Route: 048
     Dates: start: 20191008

REACTIONS (1)
  - Hospitalisation [None]
